FAERS Safety Report 25537399 (Version 1)
Quarter: 2025Q3

REPORT INFORMATION
  Report Type: Spontaneous
  Country: US (occurrence: US)
  Receive Date: 20250710
  Receipt Date: 20250710
  Transmission Date: 20251020
  Serious: Yes (Other)
  Sender: GRANULES PHARMACEUTICALS INC
  Company Number: US-GRANULES-US-2025GRALIT00351

PATIENT
  Age: 16 Month

DRUGS (6)
  1. FLUOXETINE [Suspect]
     Active Substance: FLUOXETINE HYDROCHLORIDE
     Indication: Foetal exposure during pregnancy
     Route: 064
  2. PRAZOSIN HYDROCHLORIDE [Suspect]
     Active Substance: PRAZOSIN HYDROCHLORIDE
     Indication: Foetal exposure during pregnancy
     Route: 064
  3. BUPROPION HYDROCHLORIDE [Suspect]
     Active Substance: BUPROPION HYDROCHLORIDE
     Indication: Foetal exposure during pregnancy
     Route: 064
  4. KETAMINE [Suspect]
     Active Substance: KETAMINE
     Indication: Foetal exposure during pregnancy
     Route: 064
  5. ESKETAMINE [Suspect]
     Active Substance: ESKETAMINE
     Indication: Foetal exposure during pregnancy
     Route: 064
  6. LITHIUM [Suspect]
     Active Substance: LITHIUM
     Indication: Foetal exposure during pregnancy
     Route: 064

REACTIONS (3)
  - Gross motor delay [Unknown]
  - Speech disorder developmental [Unknown]
  - Foetal exposure during pregnancy [Unknown]
